FAERS Safety Report 21193997 (Version 3)
Quarter: 2022Q4

REPORT INFORMATION
  Report Type: Spontaneous
  Country: JP (occurrence: JP)
  Receive Date: 20220810
  Receipt Date: 20221025
  Transmission Date: 20230112
  Serious: Yes (Other)
  Sender: FDA-Public Use
  Company Number: JP-ALLERGAN-2225844US

PATIENT
  Sex: Female

DRUGS (1)
  1. URSODIOL [Suspect]
     Active Substance: URSODIOL
     Indication: Exposure during pregnancy
     Dosage: UNK
     Route: 064

REACTIONS (3)
  - Hepatic function abnormal [Unknown]
  - Haemophagocytic lymphohistiocytosis [Unknown]
  - Premature baby [Unknown]
